FAERS Safety Report 6438363-8 (Version None)
Quarter: 2009Q4

REPORT INFORMATION
  Report Type: 
  Country: None (occurrence: None)
  Receive Date: 20091109
  Receipt Date: 20091029
  Transmission Date: 20100525
  Serious: Yes (Hospitalization)
  Sender: FDA-Public Use
  Company Number: 1000008748

PATIENT
  Age: 28 Year
  Sex: Male

DRUGS (5)
  1. CARBAMAZEPINE [Suspect]
     Dosage: 400 MG (200 MG, 2 IN 1 D)
  2. HALOPERIDOL [Suspect]
     Indication: PSYCHOTIC DISORDER
  3. AKINETON [Suspect]
     Dosage: 12 MG (4 MG, 3 IN 1 D)
  4. TRILAFON [Suspect]
     Indication: PSYCHOTIC DISORDER
     Dosage: 16 MG (8 MG, 2 IN 1 D)
  5. TALOFEN [Suspect]
     Indication: PSYCHOTIC DISORDER
     Dosage: (30 GTTE AT NIGHT)

REACTIONS (2)
  - INTUSSUSCEPTION [None]
  - LYMPHADENOPATHY [None]
